FAERS Safety Report 6199165-3 (Version None)
Quarter: 2009Q2

REPORT INFORMATION
  Report Type: 
  Country: None (occurrence: None)
  Receive Date: 20090522
  Receipt Date: 20090311
  Transmission Date: 20091009
  Serious: No
  Sender: FDA-Public Use
  Company Number: A0772793A

PATIENT
  Age: 69 Year
  Sex: Female

DRUGS (4)
  1. VERAMYST [Suspect]
     Dosage: 1SPR AS REQUIRED
     Route: 045
     Dates: start: 20080801, end: 20080801
  2. LORATADINE [Concomitant]
  3. LISINOPRIL [Concomitant]
  4. SIMVASTATIN [Concomitant]

REACTIONS (3)
  - INTRAOCULAR PRESSURE INCREASED [None]
  - MALAISE [None]
  - VISION BLURRED [None]
